FAERS Safety Report 8516352-7 (Version None)
Quarter: 2012Q3

REPORT INFORMATION
  Report Type: 
  Country: None (occurrence: None)
  Receive Date: 20120718
  Receipt Date: 20120704
  Transmission Date: 20120928
  Serious: Yes (Hospitalization)
  Sender: FDA-Public Use
  Company Number: AT-009507513-1206USA01733

PATIENT

DRUGS (3)
  1. SINGULAIR [Suspect]
     Indication: ASTHMA
     Dosage: 10 MG, UNK
     Route: 048
     Dates: start: 20111201, end: 20120101
  2. SINGULAIR [Suspect]
     Dosage: 10 MG, UNK
     Route: 048
     Dates: start: 20120401, end: 20120420
  3. SYMBICORT [Concomitant]

REACTIONS (4)
  - INTERSTITIAL LUNG DISEASE [None]
  - DYSPNOEA EXERTIONAL [None]
  - ASTHMA [None]
  - FEELING ABNORMAL [None]
